FAERS Safety Report 9304133 (Version 1)
Quarter: 2012Q4

REPORT INFORMATION
  Report Type: Spontaneous
  Country: US (occurrence: None)
  Receive Date: 20121206
  Receipt Date: 20121206
  Transmission Date: 20130627
  Serious: Yes (Death)
  Sender: FDA-Public Use
  Company Number: ADR-UNK-089

PATIENT

DRUGS (3)
  1. EFAVIRENZ [Suspect]
     Indication: ACQUIRED IMMUNODEFICIENCY  SYNDROME
     Dosage: 1 course/day
     Route: 048
     Dates: start: 20110112
  2. TENOFOVIR DISOPROXIL FUMARATE+EMTRICITABINE(TRUVADA�TVD) [Concomitant]
  3. LOPINAVIR+RITONAVIR (KALETRA, ALUVIA, LPV/R) [Concomitant]

REACTIONS (2)
  - Abortion spontaneous [None]
  - Exposure during pregnancy [None]
